FAERS Safety Report 20223027 (Version 1)
Quarter: 2021Q4

REPORT INFORMATION
  Report Type: Report from Study
  Country: ES (occurrence: None)
  Receive Date: 20211223
  Receipt Date: 20211223
  Transmission Date: 20220303
  Serious: Yes (Other)
  Sender: FDA-Public Use
  Company Number: ES-ROCHE-2983635

PATIENT
  Age: 65 Year
  Sex: Female

DRUGS (3)
  1. ATEZOLIZUMAB [Suspect]
     Active Substance: ATEZOLIZUMAB
     Indication: Hepatocellular carcinoma
     Dosage: ON 22/SEP/2021, AT 11:13 SHE RECEIVED MOST RECENT DOSE OF ATEZOLIZUMAB.
     Route: 041
     Dates: start: 20210901
  2. BEVACIZUMAB [Suspect]
     Active Substance: BEVACIZUMAB
     Indication: Hepatocellular carcinoma
     Dosage: ON 22/SEP/2021, AT 11:50 SHE RECEIVED MOST RECENT DOSE OF BEVACIZUMAB.
     Route: 042
     Dates: start: 20210901
  3. METHIMAZOLE [Concomitant]
     Active Substance: METHIMAZOLE
     Indication: Hyperthyroidism
     Route: 048

REACTIONS (1)
  - Immune-mediated hypothyroidism [Recovered/Resolved]

NARRATIVE: CASE EVENT DATE: 20211026
